FAERS Safety Report 9720016 (Version 1)
Quarter: 2013Q4

REPORT INFORMATION
  Report Type: Spontaneous
  Country: NL (occurrence: NL)
  Receive Date: 20131128
  Receipt Date: 20131128
  Transmission Date: 20140711
  Serious: Yes (Other)
  Sender: FDA-Public Use
  Company Number: NL-JNJFOC-20131112493

PATIENT
  Age: 17 Year
  Sex: Female

DRUGS (3)
  1. REMICADE [Suspect]
     Indication: CROHN^S DISEASE
     Route: 042
     Dates: start: 201306
  2. IMURAN [Suspect]
     Indication: CROHN^S DISEASE
     Route: 065
     Dates: start: 201306, end: 201309
  3. ALLOPURINOL [Suspect]
     Indication: CROHN^S DISEASE
     Route: 065
     Dates: start: 201306, end: 201309

REACTIONS (2)
  - Psoriasis [Recovered/Resolved with Sequelae]
  - Alopecia [Recovered/Resolved with Sequelae]
